FAERS Safety Report 7855600-3 (Version None)
Quarter: 2011Q4

REPORT INFORMATION
  Report Type: 
  Country: None (occurrence: None)
  Receive Date: 20111026
  Receipt Date: 20111011
  Transmission Date: 20120403
  Serious: Yes (Hospitalization)
  Sender: FDA-Public Use
  Company Number: AU-WATSON-2011-17491

PATIENT
  Age: 53 Year
  Sex: Male

DRUGS (1)
  1. CARVEDILOL [Suspect]
     Indication: PRODUCT USED FOR UNKNOWN INDICATION

REACTIONS (3)
  - OVERDOSE [None]
  - HAEMODYNAMIC INSTABILITY [None]
  - CARDIAC ARREST [None]
